FAERS Safety Report 15430690 (Version 1)
Quarter: 2018Q3

REPORT INFORMATION
  Report Type: Spontaneous
  Country: BR (occurrence: BR)
  Receive Date: 20180926
  Receipt Date: 20180926
  Transmission Date: 20181010
  Serious: Yes (Other)
  Sender: FDA-Public Use
  Company Number: BR-PFIZER INC-2018380848

PATIENT
  Age: 64 Year
  Sex: Female

DRUGS (1)
  1. FRONTAL [Suspect]
     Active Substance: ALPRAZOLAM
     Dosage: 2 MG, 3X/DAY

REACTIONS (2)
  - Nervousness [Not Recovered/Not Resolved]
  - Suicidal ideation [Not Recovered/Not Resolved]
